FAERS Safety Report 21096291 (Version 1)
Quarter: 2022Q3

REPORT INFORMATION
  Report Type: Spontaneous
  Country: US (occurrence: None)
  Receive Date: 20220718
  Receipt Date: 20220718
  Transmission Date: 20221026
  Serious: No
  Sender: FDA-Public Use
  Company Number: None

PATIENT
  Sex: Female

DRUGS (16)
  1. AMBRISENTAN [Suspect]
     Active Substance: AMBRISENTAN
     Indication: Pulmonary arterial hypertension
     Dosage: FREQUENCY : DAILY;?
     Route: 048
  2. DIGOXIN [Concomitant]
     Active Substance: DIGOXIN
  3. POTASSIUM ACETATE [Concomitant]
     Active Substance: POTASSIUM ACETATE
  4. HYDROXYCHLOROQUINE SULFATE [Concomitant]
     Active Substance: HYDROXYCHLOROQUINE SULFATE
  5. CYCLOBENZAPRINE HYDROCHLO [Concomitant]
  6. PREDNISONE [Concomitant]
     Active Substance: PREDNISONE
  7. PILOCARPINE HYDROCHLORIDE [Concomitant]
     Active Substance: PILOCARPINE HYDROCHLORIDE
  8. FUROSEMIDE [Concomitant]
     Active Substance: FUROSEMIDE
  9. CETIRIZINE HYDROCHLORIDE [Concomitant]
     Active Substance: CETIRIZINE HYDROCHLORIDE
  10. ALYQ [Concomitant]
     Active Substance: TADALAFIL
  11. TADALAFIL [Concomitant]
     Active Substance: TADALAFIL
  12. ASPIRIN [Concomitant]
     Active Substance: ASPIRIN
  13. MYCOPHENOLATE MOFETIL [Concomitant]
     Active Substance: MYCOPHENOLATE MOFETIL
  14. LETAIRIS [Concomitant]
     Active Substance: AMBRISENTAN
  15. OMEPRAZOLE [Concomitant]
     Active Substance: OMEPRAZOLE
  16. TADALAFIL [Suspect]
     Active Substance: TADALAFIL

REACTIONS (2)
  - Pregnancy [None]
  - Exposure during pregnancy [None]
